FAERS Safety Report 10478916 (Version 1)
Quarter: 2014Q3

REPORT INFORMATION
  Report Type: Report from Study
  Country: JP (occurrence: JP)
  Receive Date: 20140926
  Receipt Date: 20140926
  Transmission Date: 20150326
  Serious: Yes (Other)
  Sender: FDA-Public Use
  Company Number: JP-ALLERGAN-1420727US

PATIENT
  Age: 77 Year
  Sex: Male

DRUGS (8)
  1. XALATAN [Concomitant]
     Active Substance: LATANOPROST
  2. SEIBULE [Concomitant]
     Active Substance: MIGLITOL
  3. BRIMONIDINE [Suspect]
     Active Substance: BRIMONIDINE\BRIMONIDINE TARTRATE
     Indication: OPEN ANGLE GLAUCOMA
     Dosage: ONE DROP TO EACH EYE, TWICE DAILY
     Route: 047
     Dates: start: 20110428
  4. PREMINENT [Concomitant]
     Active Substance: HYDROCHLOROTHIAZIDE\LOSARTAN POTASSIUM
  5. MEVALOTIN [Concomitant]
     Active Substance: PRAVASTATIN SODIUM
  6. ACECOL [Concomitant]
     Active Substance: TEMOCAPRIL HYDROCHLORIDE
  7. DIART [Concomitant]
     Active Substance: AZOSEMIDE
  8. NOVOLIN [Concomitant]
     Active Substance: INSULIN HUMAN

REACTIONS (1)
  - Diabetic retinopathy [Recovering/Resolving]

NARRATIVE: CASE EVENT DATE: 20131228
